FAERS Safety Report 13402946 (Version 1)
Quarter: 2017Q2

REPORT INFORMATION
  Report Type: Spontaneous
  Country: US (occurrence: US)
  Receive Date: 20170404
  Receipt Date: 20170404
  Transmission Date: 20170830
  Serious: Yes (Hospitalization)
  Sender: FDA-Public Use
  Company Number: US-ROCHE-1816437

PATIENT
  Sex: Male

DRUGS (32)
  1. BEVACIZUMAB [Suspect]
     Active Substance: BEVACIZUMAB
     Dosage: ACTUAL DOSE: 419 MG?DAY 1 OF CYCLE 06
     Route: 042
     Dates: start: 20160323
  2. METOPROLOL. [Concomitant]
     Active Substance: METOPROLOL
     Route: 065
     Dates: start: 20140101
  3. AMLODIPINE [Concomitant]
     Active Substance: AMLODIPINE BESYLATE
     Route: 065
     Dates: start: 20140101, end: 20160622
  4. OCTREOTIDE. [Concomitant]
     Active Substance: OCTREOTIDE
     Indication: DIARRHOEA
     Route: 065
     Dates: start: 20160602, end: 20160622
  5. BEVACIZUMAB [Suspect]
     Active Substance: BEVACIZUMAB
     Dosage: ACTUAL DOSE: 419 MG?DAY 1 OF CYCLE 02
     Route: 042
     Dates: start: 20160127
  6. BEVACIZUMAB [Suspect]
     Active Substance: BEVACIZUMAB
     Dosage: ACTUAL DOSE: 419 MG?DAY 1 OF CYCLE 03
     Route: 042
     Dates: start: 20160210
  7. BEVACIZUMAB [Suspect]
     Active Substance: BEVACIZUMAB
     Dosage: ACTUAL DOSE: 419 MG?DAY 1 OF CYCLE 08
     Route: 042
     Dates: start: 20160427
  8. NORMAL SALINE [Concomitant]
     Active Substance: SODIUM CHLORIDE
     Indication: DEHYDRATION
     Route: 065
     Dates: start: 20160601, end: 20160608
  9. DRONABINOL. [Concomitant]
     Active Substance: DRONABINOL
     Indication: DECREASED APPETITE
     Route: 065
     Dates: start: 20160607, end: 20160622
  10. BEVACIZUMAB [Suspect]
     Active Substance: BEVACIZUMAB
     Indication: PRODUCT USED FOR UNKNOWN INDICATION
     Dosage: ACTUAL DOSE: 419 MG?DAY 1 OF CYCLE 01
     Route: 042
     Dates: start: 20160111
  11. BEVACIZUMAB [Suspect]
     Active Substance: BEVACIZUMAB
     Dosage: ACTUAL DOSE: 419 MG?DAY 1 OF CYCLE 09
     Route: 042
     Dates: start: 20160511
  12. DIPHENOXYLATE/ATROPINE [Concomitant]
     Active Substance: ATROPINE\DIPHENOXYLATE
     Indication: DIARRHOEA
     Dosage: 2.5/0/ 025
     Route: 065
     Dates: start: 20160114
  13. CEFEPIME [Concomitant]
     Active Substance: CEFEPIME HYDROCHLORIDE
     Indication: PROPHYLAXIS
     Route: 065
     Dates: start: 20160601, end: 20160601
  14. BEVACIZUMAB [Suspect]
     Active Substance: BEVACIZUMAB
     Dosage: ACTUAL DOSE: 419 MG?DAY 1 OF CYCLE 07
     Route: 042
     Dates: start: 20160413
  15. FILGRASTIM [Concomitant]
     Active Substance: FILGRASTIM
     Indication: NEUTROPENIA
     Route: 065
     Dates: start: 20160602, end: 20160606
  16. CEFEPIME [Concomitant]
     Active Substance: CEFEPIME HYDROCHLORIDE
     Route: 065
     Dates: start: 20160604, end: 20160607
  17. ACETAMINOPHEN/OXYCODONE [Concomitant]
     Active Substance: ACETAMINOPHEN\OXYCODONE HYDROCHLORIDE
     Indication: PAIN
     Route: 065
     Dates: start: 20160606
  18. DIPHENHYDRAMINE. [Concomitant]
     Active Substance: DIPHENHYDRAMINE
     Indication: PRURITUS
     Route: 065
     Dates: start: 20160606, end: 20160606
  19. BEVACIZUMAB [Suspect]
     Active Substance: BEVACIZUMAB
     Dosage: ACTUAL DOSE: 419 MG?DAY 1 OF CYCLE 05
     Route: 042
     Dates: start: 20160309
  20. BEVACIZUMAB [Suspect]
     Active Substance: BEVACIZUMAB
     Dosage: ACTUAL DOSE: 419 MG?DAY 1 OF CYCLE 10
     Route: 042
     Dates: start: 20160525
  21. ASPIRIN. [Concomitant]
     Active Substance: ASPIRIN
     Route: 065
     Dates: start: 20140101
  22. ONDANSETRON [Concomitant]
     Active Substance: ONDANSETRON
     Indication: NAUSEA
     Route: 065
     Dates: start: 20160114
  23. VANCOMYCIN [Concomitant]
     Active Substance: VANCOMYCIN
     Indication: PROPHYLAXIS
     Route: 065
     Dates: start: 20160601, end: 20160601
  24. POTASSIUM CHLORIDE. [Concomitant]
     Active Substance: POTASSIUM CHLORIDE
     Route: 065
     Dates: start: 20160608, end: 20160608
  25. POTASSIUM CHLORIDE. [Concomitant]
     Active Substance: POTASSIUM CHLORIDE
     Route: 065
     Dates: start: 20160607, end: 20160607
  26. POTASSIUM CHLORIDE. [Concomitant]
     Active Substance: POTASSIUM CHLORIDE
     Route: 065
     Dates: start: 20160605, end: 20160605
  27. BEVACIZUMAB [Suspect]
     Active Substance: BEVACIZUMAB
     Dosage: ACTUAL DOSE: 419 MG?DAY 1 OF CYCLE 04
     Route: 042
     Dates: start: 20160224
  28. LORATADINE. [Concomitant]
     Active Substance: LORATADINE
     Indication: PROPHYLAXIS
     Route: 065
     Dates: start: 20160114, end: 20160622
  29. ZINC SULFATE [Concomitant]
     Active Substance: ZINC SULFATE\ZINC SULFATE ANHYDROUS
     Route: 065
     Dates: start: 20160608, end: 20160622
  30. METRONIDAZOLE. [Concomitant]
     Active Substance: METRONIDAZOLE
     Indication: PROPHYLAXIS
     Route: 065
     Dates: start: 20160602, end: 20160622
  31. ACETAMINOPHEN. [Concomitant]
     Active Substance: ACETAMINOPHEN
     Indication: PAIN
     Route: 065
     Dates: start: 20160603, end: 20160622
  32. ONDANSETRON [Concomitant]
     Active Substance: ONDANSETRON
     Route: 065
     Dates: start: 20160601, end: 20160605

REACTIONS (1)
  - White blood cell count decreased [Recovered/Resolved]

NARRATIVE: CASE EVENT DATE: 20160601
